FAERS Safety Report 11479743 (Version 11)
Quarter: 2017Q4

REPORT INFORMATION
  Report Type: Report from Study
  Country: FR (occurrence: FR)
  Receive Date: 20150909
  Receipt Date: 20171203
  Transmission Date: 20180320
  Serious: Yes (Death, Hospitalization)
  Sender: FDA-Public Use
  Company Number: FR-ROCHE-1627611

PATIENT
  Age: 80 Year
  Sex: Male

DRUGS (4)
  1. RANIBIZUMAB. [Suspect]
     Active Substance: RANIBIZUMAB
     Dosage: 0.5 MG, UNK
     Route: 050
     Dates: start: 20150416
  2. RANIBIZUMAB. [Suspect]
     Active Substance: RANIBIZUMAB
     Indication: VISUAL IMPAIRMENT
     Dosage: IN LEFT EYE
     Route: 050
     Dates: start: 20150219
  3. RANIBIZUMAB. [Suspect]
     Active Substance: RANIBIZUMAB
     Indication: DIABETIC RETINAL OEDEMA
     Dosage: DATE OF LAST DOSE PRIOR TO SAE 16/APR/2015.
     Route: 050
     Dates: start: 20150319
  4. PLAVIX [Concomitant]
     Active Substance: CLOPIDOGREL BISULFATE
     Indication: PRODUCT USED FOR UNKNOWN INDICATION
     Route: 065

REACTIONS (11)
  - Eye haematoma [Unknown]
  - Gait disturbance [Unknown]
  - Epistaxis [Recovered/Resolved]
  - Eye pruritus [Recovered/Resolved]
  - Lung infection [Unknown]
  - Back pain [Unknown]
  - Influenza [Not Recovered/Not Resolved]
  - Cardiac failure [Fatal]
  - Epistaxis [Recovered/Resolved]
  - Eye haemorrhage [Unknown]
  - Osteoarthritis [Unknown]

NARRATIVE: CASE EVENT DATE: 201504
